FAERS Safety Report 8912157 (Version 2)
Quarter: 2012Q4

REPORT INFORMATION
  Report Type: 
  Country: US (occurrence: US)
  Receive Date: 20121116
  Receipt Date: 20121119
  Transmission Date: 20130627
  Serious: No
  Sender: FDA-Public Use
  Company Number: US-009507513-1210USA005995

PATIENT
  Age: 58 Year
  Sex: Female

DRUGS (3)
  1. CLARITIN [Suspect]
     Indication: SINUS DISORDER
     Dosage: 10 mg, Once
     Route: 048
     Dates: start: 20120824
  2. CLARITIN [Suspect]
     Indication: HYPERSENSITIVITY
  3. CLARITIN [Suspect]
     Indication: MEDICAL OBSERVATION

REACTIONS (4)
  - Headache [Recovered/Resolved]
  - Abdominal pain upper [Recovered/Resolved]
  - Nausea [Recovered/Resolved]
  - Sinus headache [Recovered/Resolved]
